FAERS Safety Report 10416039 (Version 1)
Quarter: 2014Q3

REPORT INFORMATION
  Report Type: Spontaneous
  Country: US (occurrence: US)
  Receive Date: 20140828
  Receipt Date: 20140828
  Transmission Date: 20150326
  Serious: No
  Sender: FDA-Public Use
  Company Number: US-PFIZER INC-2014238621

PATIENT
  Age: 57 Year
  Sex: Female
  Weight: 54.4 kg

DRUGS (10)
  1. POT CHLOR ER [Concomitant]
     Dosage: UNK, 2X/DAY
  2. LYRICA [Suspect]
     Active Substance: PREGABALIN
     Indication: NEURALGIA
     Dosage: 300 MG, 2X/DAY
  3. SPIRIVA [Concomitant]
     Active Substance: TIOTROPIUM BROMIDE MONOHYDRATE
     Dosage: UNK, DAILY
  4. OXYCODONE/PARACETAMOL [Concomitant]
     Dosage: OXYCODONE 10 MG/ PARACETAMOL 325 MG, 2X/DAY
  5. ALBUTEROL. [Concomitant]
     Active Substance: ALBUTEROL
     Dosage: 2.5 MG, 4X/DAY
  6. VENTOLIN HFA [Concomitant]
     Active Substance: ALBUTEROL SULFATE
     Dosage: UNK
  7. PANTOPRAZOLE SODIUM [Concomitant]
     Active Substance: PANTOPRAZOLE SODIUM
     Dosage: 20 MG, DAILY
  8. FUROSEMIDE. [Concomitant]
     Active Substance: FUROSEMIDE
     Dosage: 50 MG, DAILY
  9. TAMOXIFEN [Concomitant]
     Active Substance: TAMOXIFEN
     Dosage: 20 MG, DAILY
  10. ADVAIR DISKUS 250/50 [Concomitant]
     Dosage: FLUTICASONE PROPIONATE 250 MG/ SALMETEROL XINAFOATE 50 MG  2X/DAY

REACTIONS (1)
  - Pain [Recovered/Resolved]
